FAERS Safety Report 4977349-7 (Version None)
Quarter: 2006Q2

REPORT INFORMATION
  Report Type: 
  Country: None (occurrence: None)
  Receive Date: 20060419
  Receipt Date: 20051214
  Transmission Date: 20061013
  Serious: Yes (Hospitalization)
  Sender: FDA-Public Use
  Company Number: US-MERCK-0512USA02341

PATIENT
  Age: 74 Year
  Sex: Male
  Weight: 66 kg

DRUGS (2)
  1. VIOXX [Suspect]
     Route: 048
     Dates: start: 19990101
  2. SYNTHROID [Concomitant]
     Route: 065

REACTIONS (11)
  - ABDOMINAL PAIN LOWER [None]
  - CEREBROVASCULAR ACCIDENT [None]
  - CHANGE OF BOWEL HABIT [None]
  - CHEST PAIN [None]
  - DIPLOPIA [None]
  - DIVERTICULUM [None]
  - DYSLIPIDAEMIA [None]
  - HAEMORRHOIDS [None]
  - HEADACHE [None]
  - HYPOTHYROIDISM [None]
  - RECTAL HAEMORRHAGE [None]
